FAERS Safety Report 26052085 (Version 1)
Quarter: 2025Q4

REPORT INFORMATION
  Report Type: Spontaneous
  Country: CN (occurrence: CN)
  Receive Date: 20251117
  Receipt Date: 20251117
  Transmission Date: 20260119
  Serious: Yes (Hospitalization)
  Sender: ALEXION PHARMACEUTICALS
  Company Number: CN-ASTRAZENECA-202511CHN007490CN

PATIENT
  Age: 62 Year
  Sex: Male
  Weight: 60 kg

DRUGS (5)
  1. BRILINTA [Suspect]
     Active Substance: TICAGRELOR
     Indication: Coronary arterial stent insertion
     Dosage: 90 MILLIGRAM, BID
     Dates: start: 20251105, end: 20251106
  2. METOPROLOL SUCCINATE [Suspect]
     Active Substance: METOPROLOL SUCCINATE
     Indication: Coronary arterial stent insertion
     Dosage: 47.5 MILLIGRAM, QD
     Dates: start: 20251105, end: 20251106
  3. ROSUVASTATIN CALCIUM [Suspect]
     Active Substance: ROSUVASTATIN CALCIUM
     Indication: Coronary arterial stent insertion
     Dosage: 10 MILLIGRAM, QD
     Dates: start: 20251105, end: 20251106
  4. DAPAGLIFLOZIN [Suspect]
     Active Substance: DAPAGLIFLOZIN
     Indication: Coronary arterial stent insertion
     Dosage: 10 MILLIGRAM, QD
     Dates: start: 20251105, end: 20251106
  5. ASPIRIN [Suspect]
     Active Substance: ASPIRIN
     Indication: Coronary arterial stent insertion
     Dosage: 100 MILLIGRAM, QD
     Dates: start: 20251105, end: 20251106

REACTIONS (6)
  - Poor quality sleep [Unknown]
  - Abnormal dreams [Unknown]
  - Chest pain [Unknown]
  - Frequent bowel movements [Unknown]
  - Defaecation disorder [Unknown]
  - Eructation [Unknown]

NARRATIVE: CASE EVENT DATE: 20251106
